FAERS Safety Report 16470034 (Version 1)
Quarter: 2019Q2

REPORT INFORMATION
  Report Type: Spontaneous
  Country: US (occurrence: US)
  Receive Date: 20190624
  Receipt Date: 20190624
  Transmission Date: 20190711
  Serious: No
  Sender: FDA-Public Use
  Company Number: US-MYLANLABS-2019M1054347

PATIENT
  Sex: Female
  Weight: 59 kg

DRUGS (1)
  1. PROCTOFOAM HC [Suspect]
     Active Substance: HYDROCORTISONE ACETATE\PRAMOXINE HYDROCHLORIDE
     Indication: HAEMORRHOIDS
     Dosage: UNK UNK, PRN
     Route: 053
     Dates: start: 20181219

REACTIONS (2)
  - Product container issue [Unknown]
  - Wrong technique in product usage process [Not Recovered/Not Resolved]
